FAERS Safety Report 23452210 (Version 2)
Quarter: 2024Q1

REPORT INFORMATION
  Report Type: Spontaneous
  Country: US (occurrence: US)
  Receive Date: 20240129
  Receipt Date: 20240311
  Transmission Date: 20240409
  Serious: Yes (Other)
  Sender: FDA-Public Use
  Company Number: US-TEVA-VS-3134821

PATIENT
  Age: 19 Year
  Sex: Female
  Weight: 114 kg

DRUGS (1)
  1. MEGESTROL ACETATE [Suspect]
     Active Substance: MEGESTROL ACETATE
     Indication: Decreased appetite
     Route: 065

REACTIONS (4)
  - Cushing^s syndrome [Unknown]
  - Adrenal insufficiency [Recovered/Resolved]
  - Diabetes mellitus [Recovered/Resolved]
  - Secondary hypogonadism [Recovered/Resolved]
